FAERS Safety Report 6259274-7 (Version None)
Quarter: 2009Q4

REPORT INFORMATION
  Report Type: 
  Country: None (occurrence: None)
  Receive Date: 20090702
  Receipt Date: 20090623
  Transmission Date: 20100525
  Serious: Yes (Death)
  Sender: FDA-Public Use
  Company Number: 310657

PATIENT
  Age: 49 Year
  Sex: Female

DRUGS (3)
  1. ETOPOSIDE [Suspect]
     Indication: LUNG NEOPLASM MALIGNANT
  2. CISPLATIN [Suspect]
     Indication: LUNG NEOPLASM MALIGNANT
  3. (THERAPEUTIC RADIOPHARMACEUTICALS) [Suspect]
     Indication: LUNG NEOPLASM MALIGNANT

REACTIONS (1)
  - ACUTE MYELOID LEUKAEMIA [None]
